FAERS Safety Report 16187194 (Version 1)
Quarter: 2019Q2

REPORT INFORMATION
  Report Type: Report from Study
  Country: None (occurrence: PR)
  Receive Date: 20190411
  Receipt Date: 20190411
  Transmission Date: 20190711
  Serious: Yes (Other)
  Sender: FDA-Public Use
  Company Number: PR-ABBVIE-19K-131-2738201-00

PATIENT
  Age: 84 Year
  Sex: Female
  Weight: 47.67 kg

DRUGS (2)
  1. HUMIRA [Suspect]
     Active Substance: ADALIMUMAB
     Indication: RHEUMATOID ARTHRITIS
     Dosage: CITRATE FREE
     Route: 058
     Dates: start: 20190124, end: 201902
  2. HUMIRA [Suspect]
     Active Substance: ADALIMUMAB
     Indication: RHEUMATOID ARTHRITIS
     Route: 058
     Dates: start: 20170825

REACTIONS (4)
  - Head injury [Recovering/Resolving]
  - Nasopharyngitis [Recovered/Resolved]
  - Blood pressure decreased [Recovering/Resolving]
  - Fall [Recovered/Resolved]

NARRATIVE: CASE EVENT DATE: 201902
